FAERS Safety Report 6992621-7 (Version None)
Quarter: 2010Q3

REPORT INFORMATION
  Report Type: 
  Country: None (occurrence: None)
  Receive Date: 20100917
  Receipt Date: 20100908
  Transmission Date: 20110219
  Serious: Yes (Other)
  Sender: FDA-Public Use
  Company Number: GB-ASTRAZENECA-2010SE42222

PATIENT
  Age: 49 Year
  Sex: Female

DRUGS (7)
  1. ZOLADEX [Suspect]
     Indication: ENDOMETRIOSIS
     Route: 058
     Dates: end: 20100825
  2. ACIDEX [Concomitant]
     Dates: start: 20070101
  3. FLUOXETINE [Concomitant]
     Dates: start: 20050101
  4. LANSOPRAZOLE [Concomitant]
     Indication: GASTROINTESTINAL DISORDER
     Dates: start: 20060101
  5. TIBOLONE [Concomitant]
     Indication: ENDOMETRIOSIS
     Dates: start: 20100818
  6. TRAMADOL [Concomitant]
     Dates: start: 20050101
  7. TROSPIUM CHLORIDE [Concomitant]
     Indication: HYPERTONIC BLADDER
     Dates: start: 20070101

REACTIONS (5)
  - BLINDNESS [None]
  - BLINDNESS TRANSIENT [None]
  - DIZZINESS [None]
  - HEADACHE [None]
  - TRANSIENT ISCHAEMIC ATTACK [None]
